FAERS Safety Report 5332371-6 (Version None)
Quarter: 2007Q2

REPORT INFORMATION
  Report Type: 
  Country: None (occurrence: None)
  Receive Date: 20070523
  Receipt Date: 20070515
  Transmission Date: 20071010
  Serious: Yes (Other)
  Sender: FDA-Public Use
  Company Number: B0463039A

PATIENT
  Age: 41 Year
  Sex: Female

DRUGS (4)
  1. COREG [Suspect]
     Indication: DRUG USE FOR UNKNOWN INDICATION
     Route: 065
     Dates: start: 20041018, end: 20041219
  2. LOSARTAN POSTASSIUM [Concomitant]
     Dosage: 50MG TWICE PER DAY
  3. SPIRONOLACTONE [Concomitant]
     Dosage: 50MG IN THE MORNING
  4. FRUSEMIDE [Concomitant]
     Dosage: 20MG TWICE PER DAY
     Dates: start: 20041005, end: 20041018

REACTIONS (15)
  - ALANINE AMINOTRANSFERASE INCREASED [None]
  - BEDRIDDEN [None]
  - DIARRHOEA [None]
  - DRUG INTOLERANCE [None]
  - DYSPNOEA [None]
  - EJECTION FRACTION DECREASED [None]
  - FATIGUE [None]
  - FLUID RETENTION [None]
  - HEART SOUNDS ABNORMAL [None]
  - HEPATIC FUNCTION ABNORMAL [None]
  - NAUSEA [None]
  - PALPITATIONS [None]
  - VENOUS PRESSURE JUGULAR INCREASED [None]
  - VENTRICULAR EXTRASYSTOLES [None]
  - WEIGHT INCREASED [None]
